FAERS Safety Report 19804205 (Version 2)
Quarter: 2022Q3

REPORT INFORMATION
  Report Type: Spontaneous
  Country: US (occurrence: None)
  Receive Date: 20210908
  Receipt Date: 20220907
  Transmission Date: 20221027
  Serious: No
  Sender: FDA-Public Use
  Company Number: US-FARMAPROD-202107-1108

PATIENT
  Sex: Male

DRUGS (6)
  1. OXERVATE [Suspect]
     Active Substance: CENEGERMIN-BKBJ
     Indication: Neurotrophic keratopathy
     Route: 047
     Dates: start: 20210630, end: 20210826
  2. OXERVATE [Suspect]
     Active Substance: CENEGERMIN-BKBJ
     Route: 047
     Dates: start: 20211004
  3. VITAMIN B12 [Concomitant]
     Active Substance: CYANOCOBALAMIN
  4. REFRESH CELLUVISC [Concomitant]
     Active Substance: CARBOXYMETHYLCELLULOSE SODIUM
     Dosage: 1 % DROPER GEL
  5. ASPIRIN [Concomitant]
     Active Substance: ASPIRIN
  6. ELIQUIS [Concomitant]
     Active Substance: APIXABAN

REACTIONS (4)
  - Eye discharge [Unknown]
  - Accidental overdose [Unknown]
  - Product administration error [Unknown]
  - Peripheral swelling [Unknown]
